FAERS Safety Report 14358553 (Version 3)
Quarter: 2018Q4

REPORT INFORMATION
  Report Type: Spontaneous
  Country: US (occurrence: US)
  Receive Date: 20180105
  Receipt Date: 20181228
  Transmission Date: 20190204
  Serious: Yes (Other)
  Sender: FDA-Public Use
  Company Number: US-SA-2017SA214797

PATIENT
  Age: 66 Year
  Sex: Male
  Weight: 102.05 kg

DRUGS (1)
  1. DUPIXENT [Suspect]
     Active Substance: DUPILUMAB
     Indication: DERMATITIS ATOPIC
     Dosage: 300 MG,QOW
     Route: 058
     Dates: start: 20170922

REACTIONS (11)
  - Rhinorrhoea [Unknown]
  - Eye pruritus [Unknown]
  - Eye discharge [Unknown]
  - Feeling abnormal [Unknown]
  - Sneezing [Unknown]
  - Prostatic specific antigen increased [Unknown]
  - Prostate cancer [Unknown]
  - Dizziness [Unknown]
  - Injection site erythema [Unknown]
  - Injection site scar [Unknown]
  - Hypertension [Unknown]

NARRATIVE: CASE EVENT DATE: 2017
